FAERS Safety Report 5297751-6 (Version None)
Quarter: 2007Q2

REPORT INFORMATION
  Report Type: 
  Country: None (occurrence: None)
  Receive Date: 20070416
  Receipt Date: 20070403
  Transmission Date: 20071010
  Serious: Yes (Hospitalization)
  Sender: FDA-Public Use
  Company Number: BE-ELI_LILLY_AND_COMPANY-BE200703002804

PATIENT
  Age: 73 Year
  Sex: Female
  Weight: 58 kg

DRUGS (10)
  1. FORTEO [Suspect]
     Indication: OSTEOPOROSIS
     Dosage: 20 U, DAILY (1/D)
     Route: 058
     Dates: start: 20060901
  2. LEDERTREXATE [Concomitant]
     Indication: MIXED CONNECTIVE TISSUE DISEASE
     Dosage: 5 MG, WEEKLY (1/W)
     Route: 030
  3. MEDROL [Concomitant]
     Indication: MIXED CONNECTIVE TISSUE DISEASE
     Dosage: 6 MG, DAILY (1/D)
  4. DAKAR [Concomitant]
     Dosage: 15 MG, UNK
  5. PLENDUR [Concomitant]
     Indication: HYPERTENSION
     Dosage: 10 MG, DAILY (1/D)
  6. CALCIUM [Concomitant]
  7. ALPHA ^LEO^ [Concomitant]
  8. NAPROSYN [Concomitant]
  9. LEVOTHYROXINE SODIUM [Concomitant]
  10. FOLIC ACID [Concomitant]

REACTIONS (1)
  - OSTEITIS [None]
